FAERS Safety Report 8852642 (Version 1)
Quarter: 2012Q4

REPORT INFORMATION
  Report Type: 
  Country: US (occurrence: US)
  Receive Date: 20121022
  Receipt Date: 20121022
  Transmission Date: 20130627
  Serious: Yes (Hospitalization, Other)
  Sender: FDA-Public Use
  Company Number: US-B.I. PHARMACEUTICALS,INC./RIDGEFIELD-2012-BP-25658BP

PATIENT
  Age: 60 None
  Sex: Male
  Weight: 82 kg

DRUGS (1)
  1. COMBIVENT [Suspect]
     Indication: EMPHYSEMA
     Route: 055
     Dates: start: 2005

REACTIONS (8)
  - Anxiety [Recovered/Resolved]
  - Cerebrovascular accident [Not Recovered/Not Resolved]
  - Transient ischaemic attack [Not Recovered/Not Resolved]
  - Drug ineffective [Recovered/Resolved]
  - Angiopathy [Not Recovered/Not Resolved]
  - Body height decreased [Recovered/Resolved]
  - Productive cough [Recovered/Resolved]
  - Amnesia [Recovered/Resolved]
